FAERS Safety Report 8276247-3 (Version None)
Quarter: 2012Q2

REPORT INFORMATION
  Report Type: 
  Country: None (occurrence: None)
  Receive Date: 20120412
  Receipt Date: 20120402
  Transmission Date: 20120825
  Serious: Yes (Hospitalization)
  Sender: FDA-Public Use
  Company Number: PHHY2012CA028799

PATIENT
  Sex: Female

DRUGS (1)
  1. EXELON [Suspect]
     Indication: DEMENTIA ALZHEIMER'S TYPE
     Dosage: 9.5 MG/ 24 H
     Route: 062

REACTIONS (5)
  - NAUSEA [None]
  - DECREASED APPETITE [None]
  - INSOMNIA [None]
  - CARDIO-RESPIRATORY ARREST [None]
  - DYSPNOEA [None]
